FAERS Safety Report 10732004 (Version 1)
Quarter: 2015Q1

REPORT INFORMATION
  Report Type: Spontaneous
  Country: IT (occurrence: IT)
  Receive Date: 20150123
  Receipt Date: 20150123
  Transmission Date: 20150721
  Serious: Yes (Death)
  Sender: FDA-Public Use
  Company Number: IT-CIPLA LTD.-2015IT00531

PATIENT

DRUGS (2)
  1. BACILLUS CALMETTE-GUERIN [Suspect]
     Active Substance: BCG VACCINE
     Dosage: 1/3 DOSE WEEKLY FOR 6 WEEKS (MAINTENANCE 3 WEEKLY INSTILLATIONS AT 3, 6 AND 12 MONTHS
  2. GEMCITABINE [Suspect]
     Active Substance: GEMCITABINE\GEMCITABINE HYDROCHLORIDE
     Dosage: 2,000 MG/50 CC WEEKLY FOR 6 WEEKS (MAINTENANCE MONTHLY FOR 1 YEAR)

REACTIONS (1)
  - Death [Fatal]
